FAERS Safety Report 8380771-2 (Version None)
Quarter: 2012Q2

REPORT INFORMATION
  Report Type: 
  Country: None (occurrence: None)
  Receive Date: 20120523
  Receipt Date: 20120514
  Transmission Date: 20120825
  Serious: No
  Sender: FDA-Public Use
  Company Number: FR-MPIJNJ-2012-02258

PATIENT

DRUGS (3)
  1. DEXAMETHASONE [Concomitant]
  2. REVLIMID [Concomitant]
  3. VELCADE [Suspect]
     Indication: MULTIPLE MYELOMA
     Dosage: 3.5 MG, UNK
     Route: 042

REACTIONS (2)
  - ARTHRALGIA [None]
  - ERYTHEMA NODOSUM [None]
